FAERS Safety Report 16786285 (Version 1)
Quarter: 2019Q3

REPORT INFORMATION
  Report Type: Spontaneous
  Country: US (occurrence: US)
  Receive Date: 20190909
  Receipt Date: 20190909
  Transmission Date: 20191005
  Serious: Yes (Hospitalization)
  Sender: FDA-Public Use
  Company Number: US-UNICHEM PHARMACEUTICALS (USA) INC-UCM201908-000395

PATIENT
  Age: 37 Year
  Sex: Male

DRUGS (3)
  1. SOMATOSTATIN [Concomitant]
     Active Substance: SOMATOSTATIN
     Indication: HYPOGLYCAEMIA
     Route: 058
  2. QUETIAPINE. [Suspect]
     Active Substance: QUETIAPINE
     Indication: PRODUCT USED FOR UNKNOWN INDICATION
  3. PROPRANOLOL [Suspect]
     Active Substance: PROPRANOLOL HYDROCHLORIDE
     Indication: PRODUCT USED FOR UNKNOWN INDICATION

REACTIONS (2)
  - Intentional overdose [Recovered/Resolved]
  - Cardiogenic shock [Recovered/Resolved]
